FAERS Safety Report 12519053 (Version 1)
Quarter: 2016Q3

REPORT INFORMATION
  Report Type: Spontaneous
  Country: CA (occurrence: CA)
  Receive Date: 20160701
  Receipt Date: 20160701
  Transmission Date: 20161109
  Serious: Yes (Other)
  Sender: FDA-Public Use
  Company Number: CA-BRISTOL-MYERS SQUIBB COMPANY-BMS-2016-051810

PATIENT
  Age: 5 Year
  Sex: Male

DRUGS (2)
  1. YERVOY [Suspect]
     Active Substance: IPILIMUMAB
     Indication: MISMATCH REPAIR CANCER SYNDROME
  2. YERVOY [Suspect]
     Active Substance: IPILIMUMAB
     Indication: GLIOBLASTOMA
     Route: 065

REACTIONS (2)
  - Product use issue [Unknown]
  - Pneumonia [Unknown]
